FAERS Safety Report 7340498-2 (Version None)
Quarter: 2011Q1

REPORT INFORMATION
  Report Type: 
  Country: None (occurrence: None)
  Receive Date: 20110309
  Receipt Date: 20110225
  Transmission Date: 20110831
  Serious: Yes (Hospitalization)
  Sender: FDA-Public Use
  Company Number: NL-JNJFOC-20110300192

PATIENT

DRUGS (1)
  1. LISTERINE [Suspect]
     Indication: PRODUCT USED FOR UNKNOWN INDICATION
     Dosage: ONE LITER
     Route: 048

REACTIONS (3)
  - OVERDOSE [None]
  - ADVERSE DRUG REACTION [None]
  - INCORRECT ROUTE OF DRUG ADMINISTRATION [None]
